FAERS Safety Report 6501215-9 (Version None)
Quarter: 2009Q4

REPORT INFORMATION
  Report Type: 
  Country: None (occurrence: None)
  Receive Date: 20091216
  Receipt Date: 20091031
  Transmission Date: 20100525
  Serious: No
  Sender: FDA-Public Use
  Company Number: A0810280A

PATIENT
  Age: 53 Year
  Sex: Female

DRUGS (3)
  1. COMMIT [Suspect]
     Dates: start: 20090930, end: 20090930
  2. NICORETTE [Suspect]
  3. NICODERM CQ [Suspect]

REACTIONS (7)
  - APPLICATION SITE IRRITATION [None]
  - MOUTH ULCERATION [None]
  - ORAL DISCOMFORT [None]
  - OROPHARYNGEAL BLISTERING [None]
  - PAIN IN JAW [None]
  - PARAESTHESIA ORAL [None]
  - PRODUCT QUALITY ISSUE [None]
